FAERS Safety Report 4317756-9 (Version None)
Quarter: 2004Q1

REPORT INFORMATION
  Report Type: 
  Country: None (occurrence: None)
  Receive Date: 20040312
  Receipt Date: 20040227
  Transmission Date: 20041129
  Serious: Yes (Hospitalization)
  Sender: FDA-Public Use
  Company Number: 2003-06457

PATIENT
  Age: 41 Year
  Sex: Female
  Weight: 56.6996 kg

DRUGS (7)
  1. VIREAD [Suspect]
     Indication: HIV INFECTION
     Dosage: 300M MG QD PO
     Route: 048
     Dates: start: 20020709, end: 20031117
  2. KALETRA [Suspect]
     Indication: HIV INFECTION
     Dosage: 400 MG BID PO
     Route: 048
     Dates: start: 20030702
  3. EPIVIR [Concomitant]
  4. RESCRIPTOR [Concomitant]
  5. DAPSONE [Concomitant]
  6. SYNTHROID [Concomitant]
  7. DIOVAN HCT [Concomitant]

REACTIONS (10)
  - ANAEMIA [None]
  - ASTHENIA [None]
  - BLOOD CREATININE INCREASED [None]
  - DEHYDRATION [None]
  - DRUG TOXICITY [None]
  - FAILURE TO THRIVE [None]
  - FATIGUE [None]
  - FEELING ABNORMAL [None]
  - MALAISE [None]
  - RENAL FAILURE [None]
